FAERS Safety Report 16672358 (Version 1)
Quarter: 2019Q3

REPORT INFORMATION
  Report Type: Spontaneous
  Country: DK (occurrence: DK)
  Receive Date: 20190806
  Receipt Date: 20190806
  Transmission Date: 20191004
  Serious: Yes (Life-Threatening, Hospitalization)
  Sender: FDA-Public Use
  Company Number: DK-ACCORD-150342

PATIENT
  Age: 62 Year
  Sex: Female

DRUGS (2)
  1. CISPLATIN ACCORD [Suspect]
     Active Substance: CISPLATIN
     Indication: NON-SMALL CELL LUNG CANCER
     Dosage: DOSAGE: UNKNOWN (FIRST SERIES). STRENGTH: 1 MG / ML
     Route: 042
     Dates: start: 20190712, end: 20190712
  2. VINORELBINE [Concomitant]
     Active Substance: VINORELBINE TARTRATE
     Indication: NON-SMALL CELL LUNG CANCER
     Dosage: STRENGTH: 30 MG
     Route: 048
     Dates: start: 20190712

REACTIONS (3)
  - Hyponatraemia [Recovering/Resolving]
  - Seizure [Recovered/Resolved]
  - Dyskinesia [Recovering/Resolving]

NARRATIVE: CASE EVENT DATE: 20190714
